FAERS Safety Report 12989911 (Version 1)
Quarter: 2016Q4

REPORT INFORMATION
  Report Type: Spontaneous
  Country: US (occurrence: US)
  Receive Date: 20161201
  Receipt Date: 20161201
  Transmission Date: 20170207
  Serious: Yes (Other)
  Sender: FDA-Public Use
  Company Number: US-PFIZER INC-2016546391

PATIENT
  Age: 65 Year
  Sex: Female

DRUGS (2)
  1. PALBOCICLIB [Suspect]
     Active Substance: PALBOCICLIB
     Dosage: UNK
     Dates: start: 201602
  2. FULVESTRANT [Suspect]
     Active Substance: FULVESTRANT
     Dosage: UNK
     Dates: start: 201602

REACTIONS (2)
  - Neutropenia [Unknown]
  - Fatigue [Unknown]

NARRATIVE: CASE EVENT DATE: 2016
